FAERS Safety Report 5217179-4 (Version None)
Quarter: 2007Q1

REPORT INFORMATION
  Report Type: 
  Country: None (occurrence: None)
  Receive Date: 20070122
  Receipt Date: 20070122
  Transmission Date: 20070707
  Serious: Yes (Other)
  Sender: FDA-Public Use
  Company Number: None

PATIENT
  Age: 84 Year
  Sex: Male

DRUGS (5)
  1. UROXATRAL [Suspect]
     Indication: BENIGN PROSTATIC HYPERPLASIA
     Dosage: 10MG QD PO
     Route: 048
     Dates: start: 20060531, end: 20061010
  2. RABEPRAZOLE SODIUM [Concomitant]
  3. ASPIRIN [Concomitant]
  4. METFORMIN HCL [Concomitant]
  5. TEGASEROD [Concomitant]

REACTIONS (1)
  - POLLAKIURIA [None]
